FAERS Safety Report 13034541 (Version 1)
Quarter: 2016Q4

REPORT INFORMATION
  Report Type: Spontaneous
  Country: DE (occurrence: DE)
  Receive Date: 20161216
  Receipt Date: 20161216
  Transmission Date: 20170207
  Serious: Yes (Other)
  Sender: FDA-Public Use
  Company Number: DE-JNJFOC-20161213748

PATIENT
  Age: 87 Year
  Sex: Female
  Weight: 70 kg

DRUGS (10)
  1. XARELTO [Suspect]
     Active Substance: RIVAROXABAN
     Indication: THROMBOSIS PROPHYLAXIS
     Route: 048
  2. CARDIODORON B [Concomitant]
     Route: 065
  3. TORASEMID [Concomitant]
     Active Substance: TORSEMIDE
     Route: 065
  4. DIAZEPAM. [Concomitant]
     Active Substance: DIAZEPAM
     Route: 065
  5. BAYOTENSIN AKUT [Concomitant]
     Active Substance: NITRENDIPINE
     Indication: HYPERTENSION
     Route: 065
  6. ASPIRIN. [Concomitant]
     Active Substance: ASPIRIN
     Route: 065
  7. LACTULOSE AL [Concomitant]
     Active Substance: LACTULOSE
     Route: 065
  8. SIMVAHEXAL [Concomitant]
     Active Substance: SIMVASTATIN
     Route: 065
  9. AMLODIPINE [Concomitant]
     Active Substance: AMLODIPINE BESYLATE
     Route: 065
  10. POTASSIUM CHLORIDE. [Concomitant]
     Active Substance: POTASSIUM CHLORIDE
     Route: 065

REACTIONS (1)
  - Deep vein thrombosis [Unknown]

NARRATIVE: CASE EVENT DATE: 20161205
